FAERS Safety Report 24884033 (Version 1)
Quarter: 2025Q1

REPORT INFORMATION
  Report Type: Spontaneous
  Country: US (occurrence: US)
  Receive Date: 20250124
  Receipt Date: 20250124
  Transmission Date: 20250409
  Serious: No
  Sender: ANI
  Company Number: US-ANIPHARMA-2024-US-036042

PATIENT
  Age: 76 Year
  Sex: Female

DRUGS (1)
  1. NEBIVOLOL HYDROCHLORIDE [Suspect]
     Active Substance: NEBIVOLOL HYDROCHLORIDE
     Indication: Hypertension
     Dates: start: 202304

REACTIONS (1)
  - Drug ineffective [Recovered/Resolved]
